FAERS Safety Report 21165257 (Version 2)
Quarter: 2022Q3

REPORT INFORMATION
  Report Type: Spontaneous
  Country: GR (occurrence: GR)
  Receive Date: 20220803
  Receipt Date: 20220808
  Transmission Date: 20221027
  Serious: Yes (Death, Other)
  Sender: FDA-Public Use
  Company Number: GR-AMGEN-GRCSP2022131979

PATIENT
  Sex: Male

DRUGS (2)
  1. LUMAKRAS [Suspect]
     Active Substance: SOTORASIB
     Indication: Pancreatic carcinoma
     Dosage: UNK
     Route: 065
     Dates: start: 20220615
  2. LUMAKRAS [Suspect]
     Active Substance: SOTORASIB
     Indication: Off label use

REACTIONS (2)
  - Death [Fatal]
  - Off label use [Unknown]

NARRATIVE: CASE EVENT DATE: 20220101
